FAERS Safety Report 13795580 (Version 4)
Quarter: 2018Q2

REPORT INFORMATION
  Report Type: Spontaneous
  Country: US (occurrence: US)
  Receive Date: 20170726
  Receipt Date: 20180605
  Transmission Date: 20180711
  Serious: No
  Sender: FDA-Public Use
  Company Number: US-NEUROCRINE BIOSCIENCES INC.-2017NBI00415

PATIENT
  Age: 64 Year
  Sex: Female
  Weight: 113.5 kg

DRUGS (19)
  1. COGENTIN [Concomitant]
     Active Substance: BENZTROPINE MESYLATE
     Route: 048
  2. BREO ELLIPTA [Concomitant]
     Active Substance: FLUTICASONE FUROATE\VILANTEROL TRIFENATATE
  3. ZOLOFT [Concomitant]
     Active Substance: SERTRALINE HYDROCHLORIDE
  4. DUONEB [Concomitant]
     Active Substance: ALBUTEROL SULFATE\IPRATROPIUM BROMIDE
  5. ARICEPT [Concomitant]
     Active Substance: DONEPEZIL HYDROCHLORIDE
     Indication: MEMORY IMPAIRMENT
     Route: 048
  6. IRON [Concomitant]
     Active Substance: IRON
  7. INVEGA [Concomitant]
     Active Substance: PALIPERIDONE
     Indication: BIPOLAR DISORDER
     Route: 048
  8. INGREZZA [Suspect]
     Active Substance: VALBENAZINE
     Route: 048
     Dates: start: 2017, end: 20170802
  9. PRISTIQ EXTENDED-RELEASE [Concomitant]
     Active Substance: DESVENLAFAXINE SUCCINATE
     Indication: DEPRESSION
     Route: 048
  10. LEVOTHYROXINE. [Concomitant]
     Active Substance: LEVOTHYROXINE
  11. COGENTIN [Concomitant]
     Active Substance: BENZTROPINE MESYLATE
     Indication: TARDIVE DYSKINESIA
     Route: 048
     Dates: start: 20170718
  12. COGENTIN [Concomitant]
     Active Substance: BENZTROPINE MESYLATE
     Route: 048
  13. SONATA [Concomitant]
     Active Substance: ZALEPLON
     Indication: SLEEP DISORDER
     Route: 048
  14. CARVEDILOL. [Concomitant]
     Active Substance: CARVEDILOL
  15. LOSARTAN. [Concomitant]
     Active Substance: LOSARTAN
  16. INGREZZA [Suspect]
     Active Substance: VALBENAZINE
     Indication: TARDIVE DYSKINESIA
     Route: 048
     Dates: start: 20170525, end: 2017
  17. LITHIUM. [Concomitant]
     Active Substance: LITHIUM
  18. SEROQUEL [Concomitant]
     Active Substance: QUETIAPINE FUMARATE
     Indication: ANXIETY
     Route: 048
  19. LATUDA [Concomitant]
     Active Substance: LURASIDONE HYDROCHLORIDE
     Indication: BIPOLAR DISORDER
     Route: 048

REACTIONS (7)
  - Pain [Recovered/Resolved]
  - Blood urine present [Recovered/Resolved]
  - Nervousness [Recovered/Resolved]
  - Back pain [Recovered/Resolved]
  - Kidney infection [Recovered/Resolved]
  - Fatigue [Recovered/Resolved]
  - Drooling [Recovered/Resolved]

NARRATIVE: CASE EVENT DATE: 201706
